FAERS Safety Report 8379060-1 (Version None)
Quarter: 2012Q2

REPORT INFORMATION
  Report Type: 
  Country: None (occurrence: None)
  Receive Date: 20120522
  Receipt Date: 20120522
  Transmission Date: 20120825
  Serious: Yes (Other)
  Sender: FDA-Public Use
  Company Number: None

PATIENT
  Age: 38 Year
  Sex: Male

DRUGS (2)
  1. CARBAMAZEPINE [Suspect]
     Indication: INTERMITTENT EXPLOSIVE DISORDER
     Dosage: PO
     Route: 048
  2. CARBAMAZEPINE [Suspect]
     Indication: SCHIZOAFFECTIVE DISORDER
     Dosage: PO
     Route: 048

REACTIONS (3)
  - PYREXIA [None]
  - MOUTH ULCERATION [None]
  - URTICARIA [None]
